FAERS Safety Report 9065355 (Version 1)
Quarter: 2013Q1

REPORT INFORMATION
  Report Type: Report from Study
  Country: JP (occurrence: JP)
  Receive Date: 20130214
  Receipt Date: 20130214
  Transmission Date: 20140127
  Serious: Yes (Hospitalization)
  Sender: FDA-Public Use
  Company Number: JP-MERCK-2012SP027748

PATIENT
  Age: 56 Year
  Sex: Female
  Weight: 57 kg

DRUGS (19)
  1. PEGINTRON [Suspect]
     Indication: HEPATITIS C
     Dosage: 1.4MCG/KG/WEEK
     Route: 058
     Dates: start: 20120125, end: 20120312
  2. PEGINTRON [Suspect]
     Dosage: 0.97 MICROGRAM PER KILOGRAM, UNK
     Route: 058
     Dates: start: 20120313, end: 20120313
  3. PEGINTRON [Suspect]
     Dosage: 1.5 MICROGRAM PER KILOGRAM, UNK
     Route: 058
     Dates: start: 20120321
  4. PEGINTRON [Suspect]
     Dosage: 1.4MCG/KG/WEEK
     Route: 058
     Dates: end: 20120619
  5. PEGINTRON [Suspect]
     Dosage: 0.97 UNK, UNK
     Route: 058
     Dates: start: 20120626, end: 20120710
  6. REBETOL [Suspect]
     Indication: HEPATITIS C
     Dosage: 600 MG, QD
     Route: 048
     Dates: start: 20120125, end: 20120227
  7. REBETOL [Suspect]
     Dosage: 400 MG, QD
     Route: 048
     Dates: start: 20120228, end: 20120311
  8. REBETOL [Suspect]
     Dosage: 200 MG, QD
     Route: 048
     Dates: start: 20120312, end: 20120402
  9. REBETOL [Suspect]
     Dosage: 400 MG, ONCE
     Route: 048
     Dates: start: 20120403, end: 20120416
  10. REBETOL [Suspect]
     Dosage: 600 MG, ONCE
     Route: 048
     Dates: start: 20120417, end: 20120710
  11. TELAVIC [Suspect]
     Indication: HEPATITIS C
     Route: 048
     Dates: start: 20120125, end: 20120227
  12. TELAVIC [Suspect]
     Dosage: 1500 MG, ONCE
     Route: 048
     Dates: start: 20120228, end: 20120229
  13. TELAVIC [Suspect]
     Dosage: 750 MG, ONCE
     Route: 048
     Dates: start: 20120301, end: 20120306
  14. TAKEPRON [Concomitant]
     Indication: GASTROOESOPHAGEAL REFLUX DISEASE
     Dosage: FORMULATION: POR
     Route: 048
     Dates: end: 20120717
  15. TAKEPRON [Concomitant]
     Route: 048
  16. ZETIA [Concomitant]
     Indication: HYPERCHOLESTEROLAEMIA
     Dosage: CUMULATIVE DOSE: 30 MG
     Route: 048
     Dates: start: 20120125, end: 20120306
  17. GASMOTIN [Concomitant]
     Indication: GASTROOESOPHAGEAL REFLUX DISEASE
     Dosage: FORMULATION: POR
     Route: 048
     Dates: start: 20120214, end: 20120626
  18. PURSENNID (SENNOSIDES) [Concomitant]
     Indication: CONSTIPATION
     Dosage: 24MG/DAY AS NEEDED
     Route: 048
     Dates: start: 20120228
  19. MAGMITT [Concomitant]
     Indication: CONSTIPATION
     Dosage: 990MG/DAY AS NEEDED
     Route: 048

REACTIONS (1)
  - Anaemia [Recovered/Resolved]
